FAERS Safety Report 13107146 (Version 1)
Quarter: 2017Q1

REPORT INFORMATION
  Report Type: Spontaneous
  Country: ES (occurrence: ES)
  Receive Date: 20170112
  Receipt Date: 20170112
  Transmission Date: 20170428
  Serious: Yes (Hospitalization)
  Sender: FDA-Public Use
  Company Number: ES-ALEMBIC PHARMACUETICALS LIMITED-2017SCAL000022

PATIENT

DRUGS (2)
  1. LITHIUM CARBONATE. [Suspect]
     Active Substance: LITHIUM CARBONATE
     Indication: BIPOLAR DISORDER
     Dosage: 800 MG, QD
  2. OXCARBAZEPINE. [Suspect]
     Active Substance: OXCARBAZEPINE
     Indication: BIPOLAR DISORDER
     Dosage: 1200 MG, QD

REACTIONS (8)
  - Central nervous system lesion [Recovered/Resolved]
  - Mania [Unknown]
  - Psychomotor hyperactivity [Unknown]
  - Euphoric mood [Recovering/Resolving]
  - Drug withdrawal syndrome [Unknown]
  - Confusional state [Recovering/Resolving]
  - Insomnia [Unknown]
  - Verbigeration [Unknown]
